FAERS Safety Report 21043592 (Version 1)
Quarter: 2022Q3

REPORT INFORMATION
  Report Type: Spontaneous
  Country: US (occurrence: US)
  Receive Date: 20220705
  Receipt Date: 20220705
  Transmission Date: 20221026
  Serious: No
  Sender: FDA-Public Use
  Company Number: US-SAREPTA THERAPEUTICS INC.-SRP2021-001931

PATIENT
  Age: 14 Year
  Sex: Male
  Weight: 72.11 kg

DRUGS (7)
  1. EXONDYS 51 [Suspect]
     Active Substance: ETEPLIRSEN
     Indication: Duchenne muscular dystrophy
     Dosage: 2100 MILLIGRAM, WEEKLY
     Route: 042
     Dates: start: 202104, end: 20211217
  2. EXONDYS 51 [Suspect]
     Active Substance: ETEPLIRSEN
     Dosage: 2100 MILLIGRAM, WEEKLY
     Route: 042
     Dates: start: 20220112
  3. PREDNISONE [Concomitant]
     Active Substance: PREDNISONE
     Indication: Product used for unknown indication
     Dosage: 12 MILLILITER, AS DIRECTED ON SATURDAYS
     Route: 048
     Dates: start: 20171005
  4. VITAMIN D3 [Concomitant]
     Active Substance: CHOLECALCIFEROL
     Indication: Product used for unknown indication
     Dosage: 1 TABLET, QD
     Route: 048
     Dates: start: 20171005
  5. HEPARIN [Concomitant]
     Active Substance: HEPARIN SODIUM
     Indication: Product used for unknown indication
     Dosage: 100 UNITS/ML 5 ML POSIFLUSH 500 UNITS IVC AS DIRECTED
     Route: 042
     Dates: start: 20200812
  6. LISINOPRIL [Concomitant]
     Active Substance: LISINOPRIL
     Indication: Product used for unknown indication
     Dosage: 2.5 MILLIGRAM, QD
     Route: 048
     Dates: start: 20200828
  7. SPIRONOLACTONE [Concomitant]
     Active Substance: SPIRONOLACTONE
     Indication: Product used for unknown indication
     Dosage: 25 MILLIGRAM, QD
     Route: 048
     Dates: start: 20200828

REACTIONS (3)
  - Catheter site bruise [Recovered/Resolved]
  - Product dose omission issue [Unknown]
  - Wrong technique in product usage process [Unknown]

NARRATIVE: CASE EVENT DATE: 20211224
